FAERS Safety Report 6413056-1 (Version None)
Quarter: 2009Q4

REPORT INFORMATION
  Report Type: 
  Country: None (occurrence: None)
  Receive Date: 20091023
  Receipt Date: 20091023
  Transmission Date: 20100525
  Serious: Yes (Life-Threatening)
  Sender: FDA-Public Use
  Company Number: None

PATIENT
  Sex: Female
  Weight: 108.3 kg

DRUGS (6)
  1. DASATINIB 50MG [Suspect]
     Indication: OVARIAN CANCER
     Dosage: 150MG ORAL QD
     Route: 048
     Dates: start: 20091005, end: 20091018
  2. PACLITAXEL [Suspect]
     Indication: OVARIAN CANCER
     Dosage: 350MG IV Q 21 DAYS
     Route: 042
     Dates: start: 20091005, end: 20091005
  3. NEXIUM [Concomitant]
  4. ATIVAN [Concomitant]
  5. COMPAZINE [Concomitant]
  6. VICODIN ES [Concomitant]

REACTIONS (1)
  - FEBRILE NEUTROPENIA [None]
